FAERS Safety Report 8161331-5 (Version None)
Quarter: 2012Q1

REPORT INFORMATION
  Report Type: 
  Country: None (occurrence: None)
  Receive Date: 20120224
  Receipt Date: 20120213
  Transmission Date: 20120608
  Serious: Yes (Other)
  Sender: FDA-Public Use
  Company Number: US-SANOFI-AVENTIS-2012SA007379

PATIENT
  Age: 79 Year
  Sex: Female
  Weight: 71 kg

DRUGS (11)
  1. ASPIRIN [Concomitant]
  2. LEVOTHROID [Concomitant]
     Indication: THYROID DISORDER
     Dates: start: 19900101
  3. DIGOXIN [Concomitant]
  4. LIPITOR [Concomitant]
     Dates: start: 19950101
  5. LANTUS [Suspect]
     Dosage: HAS USED LANTUS FOR 8 YEARS. DOSE:22 UNIT(S)
     Route: 058
     Dates: start: 20120128
  6. PANTOPRAZOLE [Concomitant]
     Indication: GASTRIC DISORDER
     Dates: start: 20120101
  7. GLIMEPIRIDE [Concomitant]
     Dates: start: 19900101
  8. FUROSEMIDE [Concomitant]
  9. ANASTROZOLE [Concomitant]
     Indication: BREAST CANCER
     Dates: start: 20120101
  10. METOPROLOL TARTRATE [Concomitant]
  11. AMLODIPINE [Concomitant]

REACTIONS (1)
  - DIABETIC RETINOPATHY [None]
